FAERS Safety Report 12694906 (Version 2)
Quarter: 2016Q3

REPORT INFORMATION
  Report Type: Spontaneous
  Country: FI (occurrence: FI)
  Receive Date: 20160829
  Receipt Date: 20160906
  Transmission Date: 20161109
  Serious: Yes (Other)
  Sender: FDA-Public Use
  Company Number: FI-JNJFOC-20160820694

PATIENT
  Age: 16 Year
  Sex: Female

DRUGS (2)
  1. INFLIXIMAB, RECOMBINANT [Suspect]
     Active Substance: INFLIXIMAB
     Indication: CROHN^S DISEASE
     Route: 042
  2. INFLIXIMAB, RECOMBINANT [Suspect]
     Active Substance: INFLIXIMAB
     Indication: CROHN^S DISEASE
     Route: 042

REACTIONS (8)
  - Colectomy [Unknown]
  - Surgery [Unknown]
  - Malnutrition [Unknown]
  - Drug effect decreased [Unknown]
  - Drug specific antibody present [Unknown]
  - Stoma closure [Unknown]
  - Growth retardation [Unknown]
  - Crohn^s disease [Unknown]
